FAERS Safety Report 8458051-6 (Version None)
Quarter: 2012Q2

REPORT INFORMATION
  Report Type: 
  Country: None (occurrence: None)
  Receive Date: 20120622
  Receipt Date: 20120612
  Transmission Date: 20120825
  Serious: Yes (Hospitalization)
  Sender: FDA-Public Use
  Company Number: US-JNJFOC-20120606709

PATIENT
  Sex: Female
  Weight: 77.11 kg

DRUGS (2)
  1. EXTRA STRENGTH TYLENOL [Suspect]
     Indication: PAIN
     Route: 048
     Dates: end: 20011119
  2. EXTRA STRENGTH TYLENOL [Suspect]
     Route: 048

REACTIONS (1)
  - DRUG-INDUCED LIVER INJURY [None]
